FAERS Safety Report 25054120 (Version 1)
Quarter: 2025Q1

REPORT INFORMATION
  Report Type: Spontaneous
  Country: US (occurrence: US)
  Receive Date: 20250307
  Receipt Date: 20250307
  Transmission Date: 20250409
  Serious: No
  Sender: SANOFI AVENTIS
  Company Number: US-SA-2025SA064959

PATIENT
  Age: 70 Year
  Sex: Male

DRUGS (7)
  1. REZUROCK [Suspect]
     Active Substance: BELUMOSUDIL
     Indication: Acute myelomonocytic leukaemia
     Dosage: 200 MG, QD
     Route: 048
     Dates: start: 202501
  2. LOVENOX [Concomitant]
     Active Substance: ENOXAPARIN SODIUM
  3. MAGNESIUM OXIDE [Concomitant]
     Active Substance: MAGNESIUM OXIDE
  4. POSACONAZOLE [Concomitant]
     Active Substance: POSACONAZOLE
  5. PROCHLORPERAZINE [Concomitant]
     Active Substance: PROCHLORPERAZINE
  6. TYLENOL [Concomitant]
     Active Substance: ACETAMINOPHEN
  7. VALACYCLOVIR [Concomitant]
     Active Substance: VALACYCLOVIR HYDROCHLORIDE

REACTIONS (1)
  - Product use in unapproved indication [Unknown]

NARRATIVE: CASE EVENT DATE: 20250101
